FAERS Safety Report 7743344-8 (Version None)
Quarter: 2011Q3

REPORT INFORMATION
  Report Type: 
  Country: None (occurrence: None)
  Receive Date: 20110909
  Receipt Date: 20110909
  Transmission Date: 20111222
  Serious: Yes (Life-Threatening, Other)
  Sender: FDA-Public Use
  Company Number: None

PATIENT
  Age: 44 Year
  Sex: Female
  Weight: 84.3 kg

DRUGS (2)
  1. LAMOTRIGINE [Suspect]
     Indication: BIPOLAR DISORDER
     Dosage: 100 MG 1 PO BID BY MOUTH
     Route: 048
     Dates: start: 20110824
  2. LAMOTRIGINE [Suspect]
     Indication: BIPOLAR DISORDER
     Dosage: 100 MG 1 PO BID BY MOUTH
     Route: 048
     Dates: start: 20110801

REACTIONS (9)
  - ANXIETY [None]
  - SUICIDAL IDEATION [None]
  - DEPRESSION [None]
  - EXTRAPYRAMIDAL DISORDER [None]
  - DYSTONIA [None]
  - PRODUCT SUBSTITUTION ISSUE [None]
  - IRRITABILITY [None]
  - EXAGGERATED STARTLE RESPONSE [None]
  - FEAR [None]
